FAERS Safety Report 8123317-6 (Version None)
Quarter: 2012Q1

REPORT INFORMATION
  Report Type: 
  Country: None (occurrence: None)
  Receive Date: 20120208
  Receipt Date: 20120203
  Transmission Date: 20120608
  Serious: No
  Sender: FDA-Public Use
  Company Number: US-BAYER-2012-012608

PATIENT

DRUGS (2)
  1. NYQUIL [Concomitant]
     Indication: HEADACHE
     Dosage: 4 DF, UNK
  2. ALEVE (CAPLET) [Suspect]
     Indication: HEADACHE
     Dosage: 3 DF, UNK
     Route: 048

REACTIONS (1)
  - INSOMNIA [None]
